FAERS Safety Report 20497182 (Version 2)
Quarter: 2022Q2

REPORT INFORMATION
  Report Type: Spontaneous
  Country: US (occurrence: US)
  Receive Date: 20220221
  Receipt Date: 20220420
  Transmission Date: 20220721
  Serious: No
  Sender: FDA-Public Use
  Company Number: US-PFIZER INC-2021651834

PATIENT
  Sex: Female

DRUGS (2)
  1. IBRANCE [Suspect]
     Active Substance: PALBOCICLIB
     Indication: Breast cancer female
     Dosage: UNK
  2. VERZENIO [Concomitant]
     Active Substance: ABEMACICLIB
     Indication: Breast cancer female
     Dosage: UNK

REACTIONS (5)
  - Drug ineffective [Unknown]
  - Herpes virus infection [Unknown]
  - Gastrointestinal disorder [Unknown]
  - Mucosal disorder [Unknown]
  - Asthenia [Unknown]
